FAERS Safety Report 6963364-0 (Version None)
Quarter: 2010Q3

REPORT INFORMATION
  Report Type: 
  Country: None (occurrence: None)
  Receive Date: 20100823
  Receipt Date: 20100720
  Transmission Date: 20110219
  Serious: No
  Sender: FDA-Public Use
  Company Number: 015794

PATIENT
  Sex: Male
  Weight: 68 kg

DRUGS (6)
  1. CERTOLIZUMAB PEGOL [Suspect]
     Indication: CROHN'S DISEASE
     Dosage: (400 MG 1X/4 WEEKS SUBCUTANEOUS)
     Route: 058
     Dates: start: 20090801, end: 20100617
  2. LOMOTIL /00034001/ [Concomitant]
  3. LISINOPRIL [Concomitant]
  4. SERTRALINE HYDROCHLORIDE [Concomitant]
  5. OMEPRAZOLE [Concomitant]
  6. DOXEPIN HCL [Concomitant]

REACTIONS (3)
  - DRUG INEFFECTIVE [None]
  - RASH [None]
  - TOOTH ABSCESS [None]
